FAERS Safety Report 18801138 (Version 2)
Quarter: 2021Q1

REPORT INFORMATION
  Report Type: Spontaneous
  Country: RO (occurrence: RO)
  Receive Date: 20210128
  Receipt Date: 20210203
  Transmission Date: 20210419
  Serious: Yes (Hospitalization)
  Sender: FDA-Public Use
  Company Number: RO-ELI_LILLY_AND_COMPANY-RO202101007652

PATIENT
  Age: 22 Year
  Sex: Male

DRUGS (2)
  1. LORAZEPAM. [Concomitant]
     Active Substance: LORAZEPAM
     Indication: ANXIOLYTIC THERAPY
     Dosage: 1 MG, TID
     Route: 065
  2. OLANZAPINE. [Suspect]
     Active Substance: OLANZAPINE
     Indication: PRODUCT USED FOR UNKNOWN INDICATION
     Dosage: 15 MG, UNKNOWN
     Route: 065

REACTIONS (17)
  - Myalgia [Recovered/Resolved]
  - Neutrophilia [Recovered/Resolved]
  - Chest pain [Recovered/Resolved]
  - Blood urea increased [Recovered/Resolved]
  - Arthritis [Recovered/Resolved]
  - Leukocytosis [Recovered/Resolved]
  - Blood bilirubin increased [Recovered/Resolved]
  - Pyrexia [Recovered/Resolved]
  - Jaundice [Recovered/Resolved]
  - Tachycardia [Recovered/Resolved]
  - Hypotension [Recovered/Resolved]
  - Arthralgia [Recovered/Resolved]
  - Photophobia [Recovered/Resolved]
  - Transaminases increased [Recovered/Resolved]
  - Sepsis [Recovered/Resolved]
  - Erectile dysfunction [Recovered/Resolved]
  - Blood creatine phosphokinase increased [Recovered/Resolved]
